FAERS Safety Report 9299213 (Version 3)
Quarter: 2013Q2

REPORT INFORMATION
  Report Type: Spontaneous
  Country: JP (occurrence: JP)
  Receive Date: 20130520
  Receipt Date: 20130621
  Transmission Date: 20140414
  Serious: Yes (Death)
  Sender: FDA-Public Use
  Company Number: JP-BAXTER-2013BAX017475

PATIENT
  Sex: Female

DRUGS (2)
  1. DIANEAL PD-4 2.5 [Suspect]
     Indication: DIABETIC NEPHROPATHY
     Route: 033
     Dates: start: 200412, end: 20130509
  2. EXTRANEAL [Suspect]
     Indication: DIABETIC NEPHROPATHY
     Route: 033
     Dates: start: 200412, end: 20130509

REACTIONS (1)
  - Cardiac failure [Fatal]
